FAERS Safety Report 24946361 (Version 1)
Quarter: 2025Q1

REPORT INFORMATION
  Report Type: Spontaneous
  Country: DE (occurrence: DE)
  Receive Date: 20250210
  Receipt Date: 20250210
  Transmission Date: 20250409
  Serious: Yes (Hospitalization)
  Sender: NOVO NORDISK
  Company Number: DE-NOVOPROD-1362423

PATIENT
  Age: 108 Month
  Sex: Female
  Weight: 15.9 kg

DRUGS (2)
  1. NORDITROPIN [Suspect]
     Active Substance: SOMATROPIN
     Indication: Cardiofaciocutaneous syndrome
  2. NORDITROPIN [Suspect]
     Active Substance: SOMATROPIN
     Indication: Epiphyses delayed fusion
     Dosage: 0.94 MG, QD
     Route: 058
     Dates: start: 20220714

REACTIONS (1)
  - Status epilepticus [Recovered/Resolved]

NARRATIVE: CASE EVENT DATE: 20240902
